FAERS Safety Report 8675199 (Version 3)
Quarter: 2013Q2

REPORT INFORMATION
  Report Type: Report from Study
  Country: FR (occurrence: FR)
  Receive Date: 20120720
  Receipt Date: 20130503
  Transmission Date: 20140414
  Serious: Yes (Other)
  Sender: FDA-Public Use
  Company Number: FR-PFIZER INC-2012171562

PATIENT
  Age: 24 Year
  Sex: Female
  Weight: 63.8 kg

DRUGS (6)
  1. ATGAM [Suspect]
     Indication: BONE MARROW FAILURE
     Dosage: 2560 MG, 1X/DAY
     Dates: start: 20120125, end: 20120128
  2. CICLOSPORIN [Concomitant]
     Indication: BONE MARROW FAILURE
     Dosage: 5 MG/KG, 2X/DAY
     Dates: start: 20120125
  3. ZARZIO [Concomitant]
     Dosage: 30 IU, 1X/DAY
  4. SOLU-MEDROL [Concomitant]
     Dosage: UNK
     Dates: start: 20120125
  5. ZELITREX [Concomitant]
     Indication: INFECTION PROPHYLAXIS
     Dosage: 500 MG, 2X/DAY
     Route: 048
  6. WELLVONE [Concomitant]
     Indication: INFECTION PROPHYLAXIS
     Dosage: 600 MG, 1X/DAY
     Route: 048

REACTIONS (6)
  - Hepatocellular injury [Recovering/Resolving]
  - Cholestasis [Recovering/Resolving]
  - Infusion related reaction [Recovered/Resolved]
  - Urticaria [Recovered/Resolved]
  - Pyrexia [Recovered/Resolved]
  - Tonsillitis [Recovered/Resolved]
